FAERS Safety Report 4329788-5 (Version None)
Quarter: 2004Q1

REPORT INFORMATION
  Report Type: 
  Country: None (occurrence: None)
  Receive Date: 20040329
  Receipt Date: 20040316
  Transmission Date: 20041129
  Serious: No
  Sender: FDA-Public Use
  Company Number: 040319-0000319

PATIENT
  Age: 15 Year
  Sex: Female

DRUGS (3)
  1. METHAMPHETAMINE HCL [Suspect]
     Dosage: UNKNOWN; IV
     Route: 042
  2. HEROIN (DIAMORPHINE) [Concomitant]
  3. MORHINE [Concomitant]

REACTIONS (2)
  - DRUG ABUSER [None]
  - DRUG TOXICITY [None]
